FAERS Safety Report 8678951 (Version 2)
Quarter: 2013Q4

REPORT INFORMATION
  Report Type: Spontaneous
  Country: SE (occurrence: SE)
  Receive Date: 20120723
  Receipt Date: 20131108
  Transmission Date: 20140711
  Serious: Yes (Hospitalization)
  Sender: FDA-Public Use
  Company Number: SE-009507513-1207SWE001378

PATIENT
  Age: 70 Year
  Sex: Female

DRUGS (3)
  1. ZOCORD [Suspect]
     Dosage: 40 MG, QD
     Route: 048
     Dates: start: 20111106, end: 20120115
  2. LEVAXIN [Concomitant]
  3. CITALOPRAM [Concomitant]

REACTIONS (3)
  - Vision blurred [Recovered/Resolved]
  - Arthralgia [Recovered/Resolved]
  - Paraesthesia [Recovered/Resolved]
